FAERS Safety Report 5818864-3 (Version None)
Quarter: 2008Q3

REPORT INFORMATION
  Report Type: 
  Country: None (occurrence: None)
  Receive Date: 20080718
  Receipt Date: 20080702
  Transmission Date: 20090109
  Serious: Yes (Death)
  Sender: FDA-Public Use
  Company Number: 8034088

PATIENT
  Age: 32 Year
  Sex: Male

DRUGS (6)
  1. LORTAB [Suspect]
     Indication: PAIN
     Dosage: 250 MG/M2 ONCE IV
     Route: 042
     Dates: end: 20080407
  2. ERBITUX [Suspect]
     Indication: SQUAMOUS CELL CARCINOMA
     Dosage: 250 MG/M2 ONCE IV
     Route: 042
     Dates: start: 20080402, end: 20080402
  3. DURAGESIC-100 [Suspect]
     Indication: PAIN
  4. METHADONE HCL [Suspect]
     Indication: PAIN
  5. FENTANYL-100 [Concomitant]
  6. METHADONE HCL [Concomitant]

REACTIONS (4)
  - ANOXIC ENCEPHALOPATHY [None]
  - CARDIAC ARREST [None]
  - DYSPNOEA [None]
  - FALL [None]
